FAERS Safety Report 14245691 (Version 1)
Quarter: 2017Q4

REPORT INFORMATION
  Report Type: Spontaneous
  Country: US (occurrence: US)
  Receive Date: 20171204
  Receipt Date: 20171204
  Transmission Date: 20180321
  Serious: No
  Sender: FDA-Public Use
  Company Number: US-ELI_LILLY_AND_COMPANY-US201711011484

PATIENT
  Sex: Female

DRUGS (3)
  1. HUMULIN R U-500 [Suspect]
     Active Substance: INSULIN HUMAN
     Dosage: 100 U, BID
     Route: 058
  2. HUMULIN R U-500 [Suspect]
     Active Substance: INSULIN HUMAN
     Indication: TYPE 2 DIABETES MELLITUS
     Dosage: 100 U, BID
     Route: 058
     Dates: start: 20171016
  3. LEVEMIR [Concomitant]
     Active Substance: INSULIN DETEMIR
     Indication: TYPE 2 DIABETES MELLITUS
     Dosage: 80 U, BID
     Route: 065

REACTIONS (2)
  - Incorrect dose administered [Unknown]
  - Hypoglycaemia [Recovered/Resolved]
